FAERS Safety Report 25339062 (Version 2)
Quarter: 2025Q2

REPORT INFORMATION
  Report Type: Spontaneous
  Country: RO (occurrence: RO)
  Receive Date: 20250521
  Receipt Date: 20250609
  Transmission Date: 20250717
  Serious: Yes (Death, Hospitalization, Other)
  Sender: ALEXION PHARMACEUTICALS
  Company Number: RO-AstraZeneca-CH-00872263A

PATIENT

DRUGS (1)
  1. CALQUENCE [Suspect]
     Active Substance: ACALABRUTINIB
     Indication: Chronic lymphocytic leukaemia
     Dosage: 100 MILLIGRAM, BID

REACTIONS (9)
  - Pneumonia [Recovered/Resolved]
  - Hepatitis B [Not Recovered/Not Resolved]
  - Hepatic cytolysis [Unknown]
  - Chronic lymphocytic leukaemia [Unknown]
  - Septic shock [Recovered/Resolved]
  - Acute respiratory failure [Recovered/Resolved]
  - Death [Fatal]
  - Transaminases increased [Unknown]
  - General physical health deterioration [Unknown]
